FAERS Safety Report 23174956 (Version 1)
Quarter: 2023Q4

REPORT INFORMATION
  Report Type: Spontaneous
  Country: NL (occurrence: NL)
  Receive Date: 20231112
  Receipt Date: 20231112
  Transmission Date: 20240110
  Serious: Yes (Other)
  Sender: FDA-Public Use
  Company Number: None

PATIENT
  Age: 67 Year
  Sex: Male

DRUGS (7)
  1. CIPROFLOXACIN [Suspect]
     Active Substance: CIPROFLOXACIN
     Indication: Cystitis
     Dosage: 1000 MILLIGRAM DAILY; 2 X DAILY , CIPROFLOXACINE TABLET 500MG / BRAND NAME NOT SPECIFIED
     Dates: start: 20230215, end: 20230228
  2. AMLODIPINE [Concomitant]
     Active Substance: AMLODIPINE BESYLATE
     Indication: Product used for unknown indication
     Dosage: AMLODIPINE TABLET 10MG / BRAND NAME NOT SPECIFIED
  3. ALLOPURINOL [Concomitant]
     Active Substance: ALLOPURINOL
     Indication: Product used for unknown indication
     Dosage: ALLOPURINOL TABLET 200MG / BRAND NAME NOT SPECIFIED
  4. ROSUVASTATIN [Concomitant]
     Active Substance: ROSUVASTATIN
     Indication: Product used for unknown indication
     Dosage: ROSUVASTATINE TABLET 5MG / BRAND NAME NOT SPECIFIED
  5. COLCHICINE [Concomitant]
     Active Substance: COLCHICINE
     Indication: Product used for unknown indication
     Dosage: COLCHICINE TABLET 0.5MG / BRAND NAME NOT SPECIFIED
  6. PANTOPRAZOLE [Concomitant]
     Active Substance: PANTOPRAZOLE
     Indication: Product used for unknown indication
     Dosage: PANTOPRAZOLE TABLET MSR 40MG / BRAND NAME NOT SPECIFIED
  7. BISOPROLOL [Concomitant]
     Active Substance: BISOPROLOL\BISOPROLOL FUMARATE
     Indication: Product used for unknown indication
     Dosage: BISOPROLOL TABLET 1.25MG / BRAND NAME NOT SPECIFIED

REACTIONS (2)
  - Renal impairment [Unknown]
  - Diarrhoea [Unknown]
